FAERS Safety Report 9631927 (Version 1)
Quarter: 2013Q4

REPORT INFORMATION
  Report Type: Spontaneous
  Country: US (occurrence: None)
  Receive Date: 20131017
  Receipt Date: 20131017
  Transmission Date: 20140711
  Serious: Yes (Hospitalization)
  Sender: FDA-Public Use
  Company Number: None

PATIENT
  Age: 43 Year
  Sex: Female
  Weight: 113.4 kg

DRUGS (1)
  1. JANUVIA [Suspect]
     Indication: DIABETES MELLITUS
     Dosage: I TOOK FOR ABOUT 10 DAYS
     Route: 048

REACTIONS (8)
  - Nausea [None]
  - Diarrhoea haemorrhagic [None]
  - Abdominal discomfort [None]
  - Chromaturia [None]
  - Pain [None]
  - Weight decreased [None]
  - Aphagia [None]
  - Colitis ulcerative [None]
